FAERS Safety Report 8596158-3 (Version None)
Quarter: 2012Q3

REPORT INFORMATION
  Report Type: 
  Country: None (occurrence: None)
  Receive Date: 20120815
  Receipt Date: 20101202
  Transmission Date: 20120928
  Serious: Yes (Hospitalization)
  Sender: FDA-Public Use
  Company Number: US-GLAXOSMITHKLINE-A0899232A

PATIENT
  Sex: Male

DRUGS (1)
  1. AVANDIA [Suspect]
     Indication: DIABETES MELLITUS
     Dosage: 4MG PER DAY
     Route: 048
     Dates: start: 20031106

REACTIONS (5)
  - CARDIAC FAILURE [None]
  - CARDIAC HYPERTROPHY [None]
  - CHEST PAIN [None]
  - CARDIAC DISORDER [None]
  - HEART RATE IRREGULAR [None]
